FAERS Safety Report 18285864 (Version 1)
Quarter: 2020Q3

REPORT INFORMATION
  Report Type: Report from Study
  Country: ES (occurrence: ES)
  Receive Date: 20200919
  Receipt Date: 20200919
  Transmission Date: 20201103
  Serious: Yes (Life-Threatening, Hospitalization, Other)
  Sender: FDA-Public Use
  Company Number: ES-ACCORD-201622

PATIENT
  Age: 72 Year
  Sex: Female

DRUGS (6)
  1. CARBAMAZEPINE. [Interacting]
     Active Substance: CARBAMAZEPINE
     Indication: PAIN
     Route: 048
     Dates: start: 20160119, end: 20160131
  2. PROPAFENONE. [Concomitant]
     Active Substance: PROPAFENONE
     Indication: ATRIAL FIBRILLATION
     Dosage: 300 MG DOSE PER  300 MG NO. OF SHOTS PER UNIT OF FREQUENCY: 1 FREQUENCY UNIT: 1 DAY
     Route: 048
  3. HYDROCHLOROTHIAZIDE. [Suspect]
     Active Substance: HYDROCHLOROTHIAZIDE
     Indication: HYPERTENSION
     Dosage: FREQUENCY UNIT 0 DAY
     Route: 048
     Dates: end: 20160201
  4. SIMVASTATIN. [Concomitant]
     Active Substance: SIMVASTATIN
     Indication: HYPERLIPIDAEMIA
     Dosage: 20 MG DOSE PER INTAKE: 20 MG NO. OF SHOTS PER UNIT OF FREQUENCY: 1 FREQUENCY UNIT: 1 DAY
     Route: 048
  5. ENALAPRIL MALEATE AND HYDROCHLOROTHIAZIDE [Interacting]
     Active Substance: ENALAPRIL MALEATE\HYDROCHLOROTHIAZIDE
     Indication: HYPERTENSION
     Route: 048
     Dates: end: 20160201
  6. BUPRENORPHINE. [Concomitant]
     Active Substance: BUPRENORPHINE
     Indication: PAIN
     Dosage: 1.16 MG DOSE PER INTAKE: 1.16 MG NO. OF SHOTS PER UNIT OF FREQUENCY: 1
     Route: 062
     Dates: start: 201601, end: 20160201

REACTIONS (2)
  - Drug interaction [Unknown]
  - Hyponatraemia [Recovered/Resolved]

NARRATIVE: CASE EVENT DATE: 20160129
